FAERS Safety Report 6426817-X (Version None)
Quarter: 2009Q4

REPORT INFORMATION
  Report Type: 
  Country: None (occurrence: None)
  Receive Date: 20091030
  Receipt Date: 20091016
  Transmission Date: 20100525
  Serious: Yes (Death, Hospitalization)
  Sender: FDA-Public Use
  Company Number: 2009AC000163

PATIENT
  Age: 47 Year
  Sex: Female

DRUGS (28)
  1. DIGOXIN [Suspect]
     Dosage: 0.125 MG; QD; PO
     Route: 048
  2. DIGOXIN [Suspect]
     Dosage: 0.25 MG; QD
  3. CADUET [Concomitant]
  4. DIOVAN [Concomitant]
  5. ESTRADIOL [Concomitant]
  6. METOPROLOL TARTRATE [Concomitant]
  7. METFORMIN HCL [Concomitant]
  8. NEURONTIN [Concomitant]
  9. POTASSIUM CHLORIDE [Concomitant]
  10. TRUSOPT [Concomitant]
  11. ACTOS [Concomitant]
  12. ENALAPRIL [Concomitant]
  13. LASIX [Concomitant]
  14. ATOPERLOL [Concomitant]
  15. DARVOCET [Concomitant]
  16. FLEXERIL [Concomitant]
  17. LEXAPRO [Concomitant]
  18. KLONOPIN [Concomitant]
  19. GLUCOPHAGE [Concomitant]
  20. DIOVAN [Concomitant]
  21. VASOTEC [Concomitant]
  22. NEURONTIN [Concomitant]
  23. VASOTEC [Concomitant]
  24. GLUCOTROL [Concomitant]
  25. POTASSIUM CHLORIDE [Concomitant]
  26. NORVASC [Concomitant]
  27. LOPRESSOR [Concomitant]
  28. PLAVIX [Concomitant]

REACTIONS (33)
  - ABASIA [None]
  - ANXIETY [None]
  - BRONCHITIS [None]
  - CARDIAC FAILURE CONGESTIVE [None]
  - CATARACT [None]
  - CEREBROVASCULAR ACCIDENT [None]
  - CHOLELITHIASIS [None]
  - CRYING [None]
  - DEPRESSION [None]
  - DIABETES MELLITUS INADEQUATE CONTROL [None]
  - DYSARTHRIA [None]
  - DYSPNOEA [None]
  - EATING DISORDER [None]
  - ECONOMIC PROBLEM [None]
  - FAMILY STRESS [None]
  - HOT FLUSH [None]
  - HYPERLIPIDAEMIA [None]
  - HYPERTENSION [None]
  - HYPERTENSIVE HEART DISEASE [None]
  - MENTAL STATUS CHANGES [None]
  - MOOD SWINGS [None]
  - MULTIPLE INJURIES [None]
  - MUSCULOSKELETAL PAIN [None]
  - NAUSEA [None]
  - PAIN [None]
  - PULMONARY OEDEMA [None]
  - RENAL FAILURE ACUTE [None]
  - RETINITIS [None]
  - SOCIAL PROBLEM [None]
  - SURGERY [None]
  - THERAPEUTIC AGENT TOXICITY [None]
  - WEIGHT DECREASED [None]
  - WOUND INFECTION [None]
